FAERS Safety Report 24684701 (Version 1)
Quarter: 2024Q4

REPORT INFORMATION
  Report Type: Spontaneous
  Country: US (occurrence: US)
  Receive Date: 20241202
  Receipt Date: 20241202
  Transmission Date: 20250114
  Serious: No
  Sender: ALKEM
  Company Number: US-ALKEM LABORATORIES LIMITED-US-ALKEM-2024-22799

PATIENT
  Age: 42 Year
  Sex: Male

DRUGS (11)
  1. ISONIAZID [Suspect]
     Active Substance: ISONIAZID
     Indication: Mycobacterium kansasii infection
     Dosage: UNK
     Route: 065
  2. ISONIAZID [Suspect]
     Active Substance: ISONIAZID
     Indication: Atypical mycobacterial infection
  3. ETHAMBUTOL [Suspect]
     Active Substance: ETHAMBUTOL HYDROCHLORIDE
     Indication: Mycobacterium kansasii infection
     Dosage: UNK
     Route: 065
  4. ETHAMBUTOL [Suspect]
     Active Substance: ETHAMBUTOL HYDROCHLORIDE
     Indication: Atypical mycobacterial infection
  5. PREDNISONE [Suspect]
     Active Substance: PREDNISONE
     Indication: Mycobacterium kansasii infection
     Dosage: 60 MILLIGRAM, QD
     Route: 065
  6. PREDNISONE [Suspect]
     Active Substance: PREDNISONE
     Indication: Atypical mycobacterial infection
  7. PREDNISONE [Suspect]
     Active Substance: PREDNISONE
     Indication: Lupus nephritis
  8. RIFAMPIN [Suspect]
     Active Substance: RIFAMPIN
     Indication: Mycobacterium kansasii infection
     Dosage: UNK
     Route: 065
  9. RIFAMPIN [Suspect]
     Active Substance: RIFAMPIN
     Indication: Atypical mycobacterial infection
  10. STREPTOMYCIN [Suspect]
     Active Substance: STREPTOMYCIN SULFATE
     Indication: Mycobacterium kansasii infection
     Dosage: UNK
     Route: 065
  11. STREPTOMYCIN [Suspect]
     Active Substance: STREPTOMYCIN SULFATE
     Indication: Atypical mycobacterial infection

REACTIONS (1)
  - Drug ineffective [Unknown]
